FAERS Safety Report 4987537-1 (Version None)
Quarter: 2006Q2

REPORT INFORMATION
  Report Type: 
  Country: None (occurrence: None)
  Receive Date: 20060501
  Receipt Date: 20051206
  Transmission Date: 20061013
  Serious: Yes (Hospitalization, Disabling)
  Sender: FDA-Public Use
  Company Number: US-MERCK-0512USA01059

PATIENT
  Age: 60 Year
  Sex: Female
  Weight: 91 kg

DRUGS (8)
  1. VIOXX [Suspect]
     Indication: ARTHRALGIA
     Route: 048
     Dates: start: 20010101, end: 20020101
  2. PROCARDIA XL [Concomitant]
     Indication: CARDIAC DISORDER
     Route: 065
     Dates: start: 19980101, end: 20040101
  3. PROCARDIA XL [Concomitant]
     Indication: HYPERTENSION
     Route: 065
     Dates: start: 19980101, end: 20040101
  4. ZOCOR [Concomitant]
     Indication: BLOOD CHOLESTEROL INCREASED
     Route: 065
     Dates: start: 20010101
  5. AMBIEN [Concomitant]
     Route: 065
  6. LOPRESSOR [Concomitant]
     Indication: CARDIAC DISORDER
     Route: 065
     Dates: start: 20010101
  7. ASPIRIN [Concomitant]
     Route: 065
     Dates: start: 20010101
  8. NITROLINGUAL [Concomitant]
     Indication: CHEST PAIN
     Route: 065
     Dates: start: 20010101

REACTIONS (8)
  - ANHEDONIA [None]
  - BLOOD CHOLESTEROL INCREASED [None]
  - CARDIOMEGALY [None]
  - CARDIOVASCULAR DISORDER [None]
  - HYPERTENSION [None]
  - INSOMNIA [None]
  - MYOCARDIAL INFARCTION [None]
  - PAIN [None]
